FAERS Safety Report 10973398 (Version 1)
Quarter: 2015Q1

REPORT INFORMATION
  Report Type: Spontaneous
  Country: US (occurrence: None)
  Receive Date: 20150226
  Receipt Date: 20150226
  Transmission Date: 20150721
  Serious: No
  Sender: FDA-Public Use
  Company Number: TPA2009A02199

PATIENT
  Age: 74 Year
  Sex: Female
  Weight: 81.81 kg

DRUGS (15)
  1. COUMADIN (WARFARIN) [Concomitant]
  2. ALDACTONE [Concomitant]
     Active Substance: SPIRONOLACTONE
  3. TYLENOL [Concomitant]
     Active Substance: ACETAMINOPHEN
  4. ZAROXOLYN (METOLAZONE) [Concomitant]
  5. ATROVENT [Concomitant]
     Active Substance: IPRATROPIUM BROMIDE
  6. SINGULAIR [Concomitant]
     Active Substance: MONTELUKAST SODIUM
  7. NEXIUM [Concomitant]
     Active Substance: ESOMEPRAZOLE MAGNESIUM
  8. CYMBALTA [Concomitant]
     Active Substance: DULOXETINE HYDROCHLORIDE
  9. ULORIC [Suspect]
     Active Substance: FEBUXOSTAT
     Indication: BLOOD URIC ACID INCREASED
     Route: 048
     Dates: start: 20090720, end: 20090731
  10. BUMEX (BUMETANIDE) [Concomitant]
  11. DILTIAZEM [Concomitant]
     Active Substance: DILTIAZEM
  12. PLAQUENIL (HYDROXYCHLOROQUINE SULFATE) [Concomitant]
  13. COZAAR [Concomitant]
     Active Substance: LOSARTAN POTASSIUM
  14. ENBREL [Concomitant]
     Active Substance: ETANERCEPT
  15. POTASSIUM [Concomitant]
     Active Substance: POTASSIUM

REACTIONS (3)
  - Heart rate increased [None]
  - Arthralgia [None]
  - Condition aggravated [None]

NARRATIVE: CASE EVENT DATE: 20090720
